FAERS Safety Report 4973522-2 (Version None)
Quarter: 2006Q2

REPORT INFORMATION
  Report Type: 
  Country: None (occurrence: None)
  Receive Date: 20060414
  Receipt Date: 20060410
  Transmission Date: 20061013
  Serious: Yes (Death)
  Sender: FDA-Public Use
  Company Number: FR-SANOFI-SYNTHELABO-A02200600960

PATIENT
  Sex: Male

DRUGS (3)
  1. PLAVIX [Suspect]
     Indication: CORONARY ANGIOPLASTY
     Route: 048
     Dates: end: 20060314
  2. KARDEGIC [Interacting]
     Indication: CORONARY ANGIOPLASTY
     Route: 048
     Dates: start: 20060210, end: 20060314
  3. PREVISCAN [Interacting]
     Indication: CORONARY ANGIOPLASTY
     Route: 048
     Dates: start: 20060212, end: 20060314

REACTIONS (7)
  - CEREBRAL HAEMORRHAGE [None]
  - CORONARY ARTERY STENOSIS [None]
  - DEPRESSED LEVEL OF CONSCIOUSNESS [None]
  - DRUG INTERACTION [None]
  - INTERNATIONAL NORMALISED RATIO INCREASED [None]
  - PROTHROMBIN LEVEL DECREASED [None]
  - VOMITING [None]
